FAERS Safety Report 4744440-X (Version None)
Quarter: 2005Q3

REPORT INFORMATION
  Report Type: 
  Country: None (occurrence: None)
  Receive Date: 20050809
  Receipt Date: 20050802
  Transmission Date: 20060218
  Serious: Yes (Other)
  Sender: FDA-Public Use
  Company Number: 2005091829

PATIENT
  Age: 70 Year
  Sex: Female
  Weight: 77.1115 kg

DRUGS (6)
  1. CELEBREX [Suspect]
     Indication: OSTEOARTHRITIS
  2. SYNTHROID [Concomitant]
  3. MODURETIC 5-50 [Concomitant]
  4. MICRO-K (POTASSIUM CHLORIDE) [Concomitant]
  5. TAMOXIFEN (TAMOXIFEN) [Concomitant]
  6. CENTRUM SILVER (ASCORBIC ACID, CALCIUM, MINERALS NOS, RETINOL, TOCOPHE [Concomitant]

REACTIONS (5)
  - ARTHRALGIA [None]
  - BODY HEIGHT DECREASED [None]
  - CONDITION AGGRAVATED [None]
  - TENOSYNOVITIS [None]
  - TREATMENT NONCOMPLIANCE [None]
